FAERS Safety Report 6999924-0 (Version None)
Quarter: 2010Q3

REPORT INFORMATION
  Report Type: 
  Country: None (occurrence: None)
  Receive Date: 20100920
  Receipt Date: 20070503
  Transmission Date: 20110219
  Serious: Yes (Hospitalization, Other)
  Sender: FDA-Public Use
  Company Number: US-ASTRAZENECA-2006UW23994

PATIENT
  Age: 16456 Day
  Sex: Female
  Weight: 97.5 kg

DRUGS (30)
  1. SEROQUEL [Suspect]
     Dosage: 25-200 MG DAILY
     Route: 048
     Dates: start: 20020913
  2. SEROQUEL [Suspect]
     Route: 048
  3. ABILIFY [Suspect]
     Indication: PSYCHOTIC DISORDER
     Dates: start: 20030402
  4. RISPERDAL [Suspect]
     Dosage: 200-300 MG DAILY
     Route: 048
     Dates: start: 19980514
  5. ZYPREXA [Suspect]
  6. HALDOL [Concomitant]
  7. NAVANE [Concomitant]
     Dosage: 20-30 MG DAILY
     Dates: start: 19960607
  8. NAVANE [Concomitant]
  9. STELAZINE [Concomitant]
  10. SYNTHROID [Concomitant]
     Dosage: 0.1-0.112 MG DAILY
     Route: 048
     Dates: start: 20000327
  11. KLONOPIN [Concomitant]
     Dates: start: 20031016
  12. DILANTIN [Concomitant]
     Dosage: 200 MG-600 MG DAILY
     Route: 048
     Dates: start: 20001220
  13. NORVASC [Concomitant]
     Indication: HYPERTENSION
     Dosage: 5-10 MG DAILY
     Route: 048
     Dates: start: 19960415
  14. NORTRIPTYLINE HCL [Concomitant]
     Route: 048
     Dates: start: 19980522
  15. VISTARIL [Concomitant]
     Dosage: 40 TO 100 MG DAILY
     Route: 048
     Dates: start: 19980522
  16. DEPAKOTE [Concomitant]
     Indication: EPILEPSY
     Dosage: 1000 MG TO 1500 MG DAILY
     Dates: start: 19960415
  17. NEURONTIN [Concomitant]
     Indication: EPILEPSY
     Dosage: 120 MG-1800 MG
     Dates: start: 19960415
  18. INDERAL [Concomitant]
     Dosage: 30 MG TO 60 MG DAILY
     Dates: start: 19980514
  19. PREMARIN [Concomitant]
     Dates: start: 19980522
  20. MACROBID [Concomitant]
     Dates: start: 19980522
  21. TRANXENE [Concomitant]
     Dosage: 7.5 GM TO 15 MG DAILY
     Dates: start: 20000327
  22. GEODON [Concomitant]
     Indication: PSYCHOTIC DISORDER
     Dates: start: 20030402
  23. COGENTIN [Concomitant]
     Dates: start: 20080514
  24. ZOCOR [Concomitant]
     Dates: start: 20040216
  25. DETROL LA [Concomitant]
     Dates: start: 20040216
  26. DYAZIDE [Concomitant]
     Dates: start: 20031016
  27. DESIPRAMINE HCL [Concomitant]
     Dates: start: 19960415
  28. NAPROSYN [Concomitant]
     Dates: start: 19960415
  29. PHENOBARBITAL [Concomitant]
     Dates: start: 19851220
  30. VIOXX [Concomitant]
     Dates: start: 20030402

REACTIONS (10)
  - DIABETES MELLITUS [None]
  - DIABETIC COMA [None]
  - DIABETIC KETOACIDOSIS [None]
  - EXTRAPYRAMIDAL DISORDER [None]
  - HYPERGLYCAEMIA [None]
  - HYPOGLYCAEMIA [None]
  - NEUROLEPTIC MALIGNANT SYNDROME [None]
  - PANCREATITIS [None]
  - TARDIVE DYSKINESIA [None]
  - TYPE 2 DIABETES MELLITUS [None]
